FAERS Safety Report 8145041-6 (Version None)
Quarter: 2012Q1

REPORT INFORMATION
  Report Type: 
  Country: None (occurrence: None)
  Receive Date: 20120217
  Receipt Date: 20120210
  Transmission Date: 20120608
  Serious: Yes (Death, Hospitalization, Other)
  Sender: FDA-Public Use
  Company Number: PHHY2011US50063

PATIENT
  Sex: Male

DRUGS (2)
  1. GLEEVEC [Suspect]
     Dosage: 600 MG, QD
     Route: 048
  2. GLEEVEC [Suspect]
     Indication: ACUTE LYMPHOCYTIC LEUKAEMIA
     Dosage: 400 MG, DAILY
     Route: 048
     Dates: start: 20101201

REACTIONS (8)
  - NEOPLASM PROGRESSION [None]
  - LUNG DISORDER [None]
  - NEOPLASM MALIGNANT [None]
  - DRUG INEFFECTIVE [None]
  - DEATH [None]
  - IMMUNODEFICIENCY [None]
  - LUNG INFECTION [None]
  - FUNGAL INFECTION [None]
